FAERS Safety Report 9051474 (Version 1)
Quarter: 2013Q1

REPORT INFORMATION
  Report Type: Spontaneous
  Country: US (occurrence: US)
  Receive Date: 20130206
  Receipt Date: 20130206
  Transmission Date: 20140127
  Serious: No
  Sender: FDA-Public Use
  Company Number: US-ALLERGAN-1213857US

PATIENT
  Age: 63 None
  Sex: Male
  Weight: 74.38 kg

DRUGS (2)
  1. RESTASIS [Suspect]
     Indication: LACRIMATION DECREASED
     Dosage: ONE DROP EACH EYE, TWICE DAILY
     Route: 047
     Dates: start: 20121003, end: 20121005
  2. ARTIFICIAL TEARS [Concomitant]
     Indication: DRY EYE
     Dosage: 2 DROPS BOTH EYES EVERY HOUR, AS NEEDED
     Route: 047
     Dates: start: 20121003

REACTIONS (2)
  - Headache [Recovered/Resolved]
  - Headache [Recovered/Resolved]
